FAERS Safety Report 19960412 (Version 1)
Quarter: 2021Q4

REPORT INFORMATION
  Report Type: Spontaneous
  Country: US (occurrence: US)
  Receive Date: 20211015
  Receipt Date: 20211015
  Transmission Date: 20220303
  Serious: No
  Sender: FDA-Public Use
  Company Number: US-COLLEGIUM PHARMACEUTICAL, INC.-2020CGM00363

PATIENT
  Age: 63 Year
  Sex: Male
  Weight: 84.81 kg

DRUGS (5)
  1. NUCYNTA ER [Suspect]
     Active Substance: TAPENTADOL HYDROCHLORIDE
     Indication: Pain
     Dosage: 50 MG, 2X/DAY (EVERY 12 HOURS)
     Route: 048
     Dates: start: 2020
  2. ^GENERIC PERCOCET^ (EYWA) [Concomitant]
     Dosage: 1 DOSAGE UNITS, EVERY 6 HOURS AS NEEDED
  3. ^GENERIC PERCOCET^ (EYWA) [Concomitant]
     Dosage: 1 DOSAGE UNITS, USUALLY ONLY 2X/DAY IF THE WEATHER IS NICE
  4. ALEVE [Concomitant]
     Active Substance: NAPROXEN SODIUM
     Dosage: OCCASIONALLY
  5. ASPIRIN [Concomitant]
     Active Substance: ASPIRIN
     Dosage: OCCASIONALLY

REACTIONS (1)
  - Drug screen false positive [Unknown]

NARRATIVE: CASE EVENT DATE: 20200811
